FAERS Safety Report 7521553-0 (Version None)
Quarter: 2011Q2

REPORT INFORMATION
  Report Type: 
  Country: None (occurrence: None)
  Receive Date: 20110603
  Receipt Date: 20110531
  Transmission Date: 20111010
  Serious: No
  Sender: FDA-Public Use
  Company Number: US-PFIZER INC-2010147350

PATIENT
  Sex: Female

DRUGS (9)
  1. VITAMIN D [Concomitant]
     Dosage: 2000 IU, UNK
  2. LYRICA [Suspect]
     Indication: NEUROPATHY PERIPHERAL
     Dosage: 75 MG, 1X/DAY, (QHS)
     Route: 048
     Dates: start: 20101002
  3. PROTONIX [Concomitant]
     Indication: REFLUX GASTRITIS
     Dosage: 40 MG, UNK
  4. BENICAR [Concomitant]
     Indication: HYPOTENSION
     Dosage: 20 MG, UNK
  5. ESTRADIOL [Concomitant]
     Indication: HORMONE REPLACEMENT THERAPY
     Dosage: 0.5 MG, UNK
  6. PREMARIN [Concomitant]
     Dosage: 0.5 UNK, UNK
  7. PROVERA [Concomitant]
     Dosage: 2.5 MG, UNK
  8. PREVACID [Concomitant]
     Dosage: 15 MG, UNK
  9. ZETIA [Concomitant]
     Indication: BLOOD CHOLESTEROL ABNORMAL
     Dosage: 10 MG, UNK

REACTIONS (2)
  - VISION BLURRED [None]
  - DRY EYE [None]
